FAERS Safety Report 21126461 (Version 1)
Quarter: 2022Q3

REPORT INFORMATION
  Report Type: Spontaneous
  Country: US (occurrence: US)
  Receive Date: 20220725
  Receipt Date: 20220725
  Transmission Date: 20221027
  Serious: Yes (Death)
  Sender: FDA-Public Use
  Company Number: US-NOVARTISPH-NVSC2022US166603

PATIENT
  Age: 51 Year
  Sex: Male

DRUGS (3)
  1. CARBOPLATIN [Suspect]
     Active Substance: CARBOPLATIN
     Indication: Non-small cell lung cancer
     Dosage: UNK, CYCLIC (2 CYCLES OF CHEMOTHERAPY - CARBOPLATIN/ETOPOSIDE AND CARBOPLATIN/PACLITAXEL)
     Route: 065
  2. ETOPOSIDE [Suspect]
     Active Substance: ETOPOSIDE
     Indication: Non-small cell lung cancer
     Dosage: UNK UNK, CYCLIC (CARBOPLATIN/ETOPOSIDE)
     Route: 065
  3. PACLITAXEL [Suspect]
     Active Substance: PACLITAXEL
     Indication: Non-small cell lung cancer
     Dosage: UNK, CYCLIC (CARBOPLATIN/PACLITAXEL)
     Route: 065

REACTIONS (4)
  - Non-small cell lung cancer [Fatal]
  - Malignant neoplasm progression [Fatal]
  - Therapeutic response decreased [Unknown]
  - Product use in unapproved indication [Unknown]
